FAERS Safety Report 14038327 (Version 1)
Quarter: 2017Q4

REPORT INFORMATION
  Report Type: Spontaneous
  Country: US (occurrence: US)
  Receive Date: 20171004
  Receipt Date: 20171004
  Transmission Date: 20180321
  Serious: No
  Sender: FDA-Public Use
  Company Number: US-UNICHEM LABORATORIES LIMITED-UCM201707-000198

PATIENT
  Age: 3 Year
  Sex: Male
  Weight: 12.71 kg

DRUGS (1)
  1. CLONIDINE HCL 0.1 MG TABLET [Suspect]
     Active Substance: CLONIDINE HYDROCHLORIDE
     Indication: OPPOSITIONAL DEFIANT DISORDER
     Route: 048

REACTIONS (2)
  - Off label use [Unknown]
  - Abnormal behaviour [Unknown]
